FAERS Safety Report 6133027-2 (Version None)
Quarter: 2009Q1

REPORT INFORMATION
  Report Type: 
  Country: None (occurrence: None)
  Receive Date: 20090326
  Receipt Date: 20090316
  Transmission Date: 20090719
  Serious: Yes (Other)
  Sender: FDA-Public Use
  Company Number: ZA-PFIZER INC-2009187761

PATIENT

DRUGS (2)
  1. DOSTINEX [Suspect]
     Indication: PITUITARY TUMOUR
     Dosage: FREQUENCY: TWICE/WEEK;
     Route: 048
     Dates: end: 20090313
  2. CONCERTA [Concomitant]

REACTIONS (2)
  - BLOOD PROLACTIN ABNORMAL [None]
  - HEPATIC ENZYME INCREASED [None]
